FAERS Safety Report 6179232-0 (Version None)
Quarter: 2009Q2

REPORT INFORMATION
  Report Type: 
  Country: None (occurrence: None)
  Receive Date: 20090505
  Receipt Date: 20090126
  Transmission Date: 20091009
  Serious: No
  Sender: FDA-Public Use
  Company Number: US-BAYER-200840956NA

PATIENT
  Sex: Female

DRUGS (1)
  1. CLIMARA [Suspect]
     Indication: DRUG USE FOR UNKNOWN INDICATION
     Dosage: CONTINUOUS
     Route: 062

REACTIONS (7)
  - ANOREXIA [None]
  - ASTHENIA [None]
  - BURNING SENSATION [None]
  - DEPRESSION [None]
  - HOT FLUSH [None]
  - INSOMNIA [None]
  - NO ADVERSE EVENT [None]
